FAERS Safety Report 21724390 (Version 1)
Quarter: 2022Q4

REPORT INFORMATION
  Report Type: Spontaneous
  Country: US (occurrence: US)
  Receive Date: 20221213
  Receipt Date: 20221213
  Transmission Date: 20230113
  Serious: No
  Sender: FDA-Public Use
  Company Number: US-Dermavant-000162

PATIENT
  Sex: Female

DRUGS (1)
  1. TAPINAROF [Suspect]
     Active Substance: TAPINAROF
     Indication: Psoriasis

REACTIONS (4)
  - Application site laceration [Recovering/Resolving]
  - Application site pain [Recovering/Resolving]
  - Therapeutic product effect incomplete [Unknown]
  - Application site erythema [Recovering/Resolving]
